FAERS Safety Report 15313454 (Version 2)
Quarter: 2019Q3

REPORT INFORMATION
  Report Type: Report from Study
  Country: US (occurrence: US)
  Receive Date: 20180824
  Receipt Date: 20190808
  Transmission Date: 20191004
  Serious: Yes (Hospitalization)
  Sender: FDA-Public Use
  Company Number: US-ASTRAZENECA-2018SF03923

PATIENT
  Sex: Female

DRUGS (17)
  1. CLEOCIN [Concomitant]
     Active Substance: CLINDAMYCIN PHOSPHATE
     Indication: DERMATITIS ACNEIFORM
     Route: 061
     Dates: start: 20180522
  2. DESOWEN CREAM [Concomitant]
     Indication: DERMATITIS ACNEIFORM
     Route: 061
     Dates: start: 20180611
  3. TRIDERM CREAM [Concomitant]
     Indication: DERMATITIS ACNEIFORM
     Route: 061
     Dates: start: 20180611
  4. CLARITIN [Concomitant]
     Active Substance: LORATADINE
     Indication: DERMATITIS ACNEIFORM
     Route: 048
     Dates: start: 20180611
  5. TRAMETINIB [Suspect]
     Active Substance: TRAMETINIB
     Indication: COLON CANCER METASTATIC
     Route: 048
  6. PRADAXA [Concomitant]
     Active Substance: DABIGATRAN ETEXILATE MESYLATE
     Indication: ANTICOAGULANT THERAPY
     Route: 048
     Dates: start: 20180330
  7. PRADAXA [Concomitant]
     Active Substance: DABIGATRAN ETEXILATE MESYLATE
     Indication: THROMBOSIS PROPHYLAXIS
     Route: 048
     Dates: start: 20180330
  8. MELATONIN [Concomitant]
     Active Substance: MELATONIN
     Indication: INSOMNIA
     Dosage: 3 MG, AS REQUIRED PER HOUR
     Route: 048
     Dates: start: 20180518
  9. KENALOG [Concomitant]
     Active Substance: TRIAMCINOLONE ACETONIDE
     Indication: DERMATITIS ACNEIFORM
     Route: 061
     Dates: start: 20180523
  10. DURVALUMAB. [Suspect]
     Active Substance: DURVALUMAB
     Indication: COLON CANCER METASTATIC
     Route: 042
     Dates: start: 20180615, end: 20180615
  11. REQUIP [Concomitant]
     Active Substance: ROPINIROLE HYDROCHLORIDE
     Route: 048
     Dates: start: 20180509
  12. VIBRAMYCIN [Concomitant]
     Active Substance: DOXYCYCLINE
     Indication: DERMATITIS ACNEIFORM
     Route: 048
     Dates: start: 20180522
  13. DURVALUMAB. [Suspect]
     Active Substance: DURVALUMAB
     Indication: COLON CANCER METASTATIC
     Route: 042
  14. TRAMETINIB [Suspect]
     Active Substance: TRAMETINIB
     Indication: COLON CANCER METASTATIC
     Route: 048
     Dates: start: 20180715, end: 20180715
  15. NEURONTIN [Concomitant]
     Active Substance: GABAPENTIN
     Indication: NEUROPATHY PERIPHERAL
     Route: 048
     Dates: start: 20180330
  16. DULOXETINE. [Concomitant]
     Active Substance: DULOXETINE
     Route: 048
     Dates: start: 20170321
  17. FLOMAX [Concomitant]
     Active Substance: TAMSULOSIN HYDROCHLORIDE
     Route: 048
     Dates: start: 20180330

REACTIONS (1)
  - Autoimmune pancreatitis [Unknown]

NARRATIVE: CASE EVENT DATE: 20180801
